FAERS Safety Report 17308251 (Version 1)
Quarter: 2020Q1

REPORT INFORMATION
  Report Type: Report from Study
  Country: ES (occurrence: ES)
  Receive Date: 20200123
  Receipt Date: 20200123
  Transmission Date: 20200409
  Serious: Yes (Hospitalization)
  Sender: FDA-Public Use
  Company Number: ES-TEVA-2020-ES-1171744

PATIENT
  Age: 66 Year
  Sex: Male

DRUGS (1)
  1. GABAPENTINA (2641A) [Suspect]
     Active Substance: GABAPENTIN
     Dosage: 600-600-800
     Dates: start: 201608

REACTIONS (3)
  - Muscular weakness [Recovering/Resolving]
  - General physical health deterioration [Recovering/Resolving]
  - Urinary incontinence [Recovering/Resolving]

NARRATIVE: CASE EVENT DATE: 20180108
